FAERS Safety Report 4577179-4 (Version None)
Quarter: 2005Q1

REPORT INFORMATION
  Report Type: 
  Country: None (occurrence: None)
  Receive Date: 20050210
  Receipt Date: 20041019
  Transmission Date: 20050727
  Serious: Yes (Hospitalization)
  Sender: FDA-Public Use
  Company Number: PHNU2004DE03890

PATIENT
  Sex: Male

DRUGS (3)
  1. LOCOL [Suspect]
     Indication: HYPERCHOLESTEROLAEMIA
     Dates: end: 20041005
  2. ALLOPURINOL [Suspect]
     Indication: PROSTATE CANCER
     Dates: start: 20040101
  3. ANDROGENS [Suspect]
     Dates: start: 20040101

REACTIONS (3)
  - BLOOD CHOLESTEROL INCREASED [None]
  - BLOOD TRIGLYCERIDES INCREASED [None]
  - PROSTATE CANCER [None]
